FAERS Safety Report 10154630 (Version 1)
Quarter: 2014Q2

REPORT INFORMATION
  Report Type: Spontaneous
  Country: FR (occurrence: FR)
  Receive Date: 20140506
  Receipt Date: 20140506
  Transmission Date: 20141212
  Serious: Yes (Hospitalization)
  Sender: FDA-Public Use
  Company Number: FR-NOVOPROD-408754

PATIENT
  Age: 78 Year
  Sex: Female

DRUGS (6)
  1. NOVONORM [Suspect]
     Indication: DIABETES MELLITUS
     Dosage: UNK
     Route: 048
  2. TRIATEC                            /00116401/ [Suspect]
     Indication: MICROALBUMINURIA
     Dosage: UNK
     Route: 048
     Dates: start: 2006, end: 20140226
  3. PRAVASTATINE [Concomitant]
     Indication: HYPERCHOLESTEROLAEMIA
     Route: 048
  4. OROCAL                             /00944201/ [Concomitant]
     Route: 048
  5. DEXERYL                            /00557601/ [Concomitant]
  6. AMOXICILLINE                       /00249602/ [Concomitant]
     Indication: LUNG DISORDER
     Dosage: UNK
     Route: 048
     Dates: start: 20140222

REACTIONS (1)
  - Angioedema [Recovered/Resolved]
